FAERS Safety Report 9167479 (Version 1)
Quarter: 2013Q1

REPORT INFORMATION
  Report Type: Spontaneous
  Country: DE (occurrence: DE)
  Receive Date: 20130318
  Receipt Date: 20130318
  Transmission Date: 20140127
  Serious: Yes (Hospitalization)
  Sender: FDA-Public Use
  Company Number: DE-JNJFOC-20130108827

PATIENT
  Age: 84 Year
  Sex: Male

DRUGS (3)
  1. XARELTO [Suspect]
     Indication: CEREBROVASCULAR ACCIDENT
     Route: 048
     Dates: end: 20120727
  2. KALINORM [Concomitant]
     Indication: HYPOKALAEMIA
     Route: 048
  3. FUROSEMID [Concomitant]
     Indication: CARDIAC FAILURE
     Route: 048

REACTIONS (3)
  - Blood bilirubin increased [Recovered/Resolved]
  - General physical health deterioration [Unknown]
  - Jaundice [Unknown]
